FAERS Safety Report 5284873-9 (Version None)
Quarter: 2007Q2

REPORT INFORMATION
  Report Type: 
  Country: None (occurrence: None)
  Receive Date: 20070403
  Receipt Date: 20070327
  Transmission Date: 20071010
  Serious: Yes (Hospitalization)
  Sender: FDA-Public Use
  Company Number: CA-ROCHE-490112

PATIENT
  Age: 51 Year
  Sex: Female

DRUGS (2)
  1. COPEGUS [Suspect]
     Indication: HEPATITIS C
     Dosage: FREQUENCY:2 X BID.
     Route: 048
     Dates: start: 20061030, end: 20070315
  2. PEGASYS [Suspect]
     Indication: HEPATITIS C
     Route: 058
     Dates: start: 20061030, end: 20070319

REACTIONS (2)
  - ENTEROCOLITIS HAEMORRHAGIC [None]
  - HAEMOGLOBIN DECREASED [None]
